FAERS Safety Report 8911487 (Version 1)
Quarter: 2012Q4

REPORT INFORMATION
  Report Type: 
  Country: US (occurrence: None)
  Receive Date: 20121114
  Receipt Date: 20121114
  Transmission Date: 20130627
  Serious: Yes (Hospitalization)
  Sender: FDA-Public Use
  Company Number: None

PATIENT
  Sex: Male
  Weight: 106.36 kg

DRUGS (1)
  1. PACLITAXEL (TAXOL) [Suspect]
     Dates: start: 20121106

REACTIONS (1)
  - Constipation [None]
